FAERS Safety Report 21784162 (Version 1)
Quarter: 2022Q4

REPORT INFORMATION
  Report Type: Spontaneous
  Country: US (occurrence: US)
  Receive Date: 20221227
  Receipt Date: 20221227
  Transmission Date: 20230113
  Serious: Yes (Other)
  Sender: FDA-Public Use
  Company Number: US-VIIV HEALTHCARE LIMITED-US2022192042

PATIENT
  Sex: Male

DRUGS (6)
  1. RILPIVIRINE [Suspect]
     Active Substance: RILPIVIRINE
     Indication: HIV infection
     Dosage: UNK UNK, Z: 2 MONTH RECOMMENDED DOSING SCHEDULE, FIRST DOSE
     Route: 030
     Dates: start: 202209
  2. RILPIVIRINE [Suspect]
     Active Substance: RILPIVIRINE
     Dosage: UNK UNK, Z: 2 MONTH RECOMMENDED DOSING SCHEDULE, 2 ND DOSE
     Route: 030
     Dates: start: 202210
  3. RILPIVIRINE [Suspect]
     Active Substance: RILPIVIRINE
     Dosage: UNK UNK, Z: 2 MONTH RECOMMENDED DOSING SCHEDULE, 3 RD DOSE
     Route: 030
     Dates: start: 202212, end: 20221221
  4. CABOTEGRAVIR [Suspect]
     Active Substance: CABOTEGRAVIR
     Indication: HIV infection
     Dosage: UNK UNK, Z: 2 MONTH RECOMMENDED DOSING SCHEDULE, FIRST DOSE
     Route: 030
     Dates: start: 202209
  5. CABOTEGRAVIR [Suspect]
     Active Substance: CABOTEGRAVIR
     Dosage: UNK UNK, Z: 2 MONTH RECOMMENDED DOSING SCHEDULE, 2 ND DOSE
     Route: 030
     Dates: start: 202210
  6. CABOTEGRAVIR [Suspect]
     Active Substance: CABOTEGRAVIR
     Dosage: UNK UNK, Z: 2 MONTH RECOMMENDED DOSING SCHEDULE, 3 RD DOSE
     Route: 030
     Dates: start: 202212, end: 20221221

REACTIONS (1)
  - Viral load increased [Recovering/Resolving]
